FAERS Safety Report 18895951 (Version 1)
Quarter: 2021Q1

REPORT INFORMATION
  Report Type: Report from Study
  Country: FR (occurrence: FR)
  Receive Date: 20210216
  Receipt Date: 20210216
  Transmission Date: 20210420
  Serious: Yes (Other)
  Sender: FDA-Public Use
  Company Number: FR-ROCHE-2765055

PATIENT
  Age: 66 Year
  Sex: Male

DRUGS (2)
  1. TOCILIZUMAB. [Suspect]
     Active Substance: TOCILIZUMAB
     Indication: COVID-19
     Dosage: 20 MG/ML
     Route: 042
     Dates: start: 20200415
  2. TOCILIZUMAB. [Suspect]
     Active Substance: TOCILIZUMAB
     Dosage: 20 MG/ML
     Route: 042
     Dates: start: 20200417

REACTIONS (3)
  - Acute pulmonary oedema [Recovered/Resolved]
  - Anaemia [Recovered/Resolved]
  - Pneumothorax [Unknown]

NARRATIVE: CASE EVENT DATE: 20200507
